FAERS Safety Report 12501014 (Version 1)
Quarter: 2016Q2

REPORT INFORMATION
  Report Type: Spontaneous
  Country: US (occurrence: US)
  Receive Date: 20160627
  Receipt Date: 20160627
  Transmission Date: 20160815
  Serious: Yes (Other)
  Sender: FDA-Public Use
  Company Number: US-WARNER CHILCOTT, LLC-1054345

PATIENT
  Sex: Female

DRUGS (1)
  1. ASACOL HD [Suspect]
     Active Substance: MESALAMINE

REACTIONS (4)
  - Streptococcal urinary tract infection [Unknown]
  - Faeces discoloured [Unknown]
  - Kidney infection [Unknown]
  - Chromaturia [Unknown]
